FAERS Safety Report 4295884-4 (Version None)
Quarter: 2004Q1

REPORT INFORMATION
  Report Type: 
  Country: None (occurrence: None)
  Receive Date: 20040216
  Receipt Date: 20031201
  Transmission Date: 20041129
  Serious: No
  Sender: FDA-Public Use
  Company Number: US-GLAXOSMITHKLINE-A0441465A

PATIENT
  Age: 7 Year
  Sex: Female

DRUGS (3)
  1. LAMICTAL [Suspect]
     Dosage: 75MG TWICE PER DAY
     Route: 048
  2. KEPPRA [Suspect]
     Route: 065
  3. DEPAKOTE [Concomitant]

REACTIONS (3)
  - DRUG INEFFECTIVE [None]
  - PILOERECTION [None]
  - TREMOR [None]
